FAERS Safety Report 7380060-9 (Version None)
Quarter: 2011Q1

REPORT INFORMATION
  Report Type: 
  Country: None (occurrence: None)
  Receive Date: 20110329
  Receipt Date: 20110328
  Transmission Date: 20110831
  Serious: No
  Sender: FDA-Public Use
  Company Number: US-JNJFOC-20110305810

PATIENT
  Sex: Female

DRUGS (15)
  1. METOPROLOL [Concomitant]
     Indication: HYPERTENSION
     Route: 048
  2. VITAMIN TAB [Concomitant]
     Route: 048
  3. IRON [Concomitant]
     Indication: ANAEMIA
     Route: 048
  4. BENADRYL [Concomitant]
     Indication: PRURITUS
     Route: 048
  5. CALCIUM [Concomitant]
     Indication: BONE DISORDER
     Route: 048
  6. ZANTAC [Concomitant]
     Route: 048
  7. SIMVASTATIN [Concomitant]
     Indication: BLOOD CHOLESTEROL INCREASED
     Route: 048
  8. FENTANYL-100 [Suspect]
     Indication: BACK PAIN
     Route: 062
  9. METFORMIN HCL [Concomitant]
     Indication: DIABETES MELLITUS
     Route: 048
  10. FENTANYL-100 [Suspect]
     Indication: ARTHRITIS
     Route: 062
  11. CELEBREX [Concomitant]
     Indication: ARTHRITIS
     Route: 048
  12. OXYCODONE AND ACETAMINOPHEN [Concomitant]
     Route: 048
  13. UNKNOWN MEDICATION [Concomitant]
  14. LISINOPRIL [Concomitant]
     Indication: HYPERTENSION
     Route: 048
  15. ASPIRIN [Concomitant]
     Route: 048

REACTIONS (3)
  - DRUG ADMINISTERED AT INAPPROPRIATE SITE [None]
  - PRODUCT ADHESION ISSUE [None]
  - PAIN IN EXTREMITY [None]
